FAERS Safety Report 26153170 (Version 1)
Quarter: 2025Q4

REPORT INFORMATION
  Report Type: Report from Study
  Country: TR (occurrence: TR)
  Receive Date: 20251214
  Receipt Date: 20251214
  Transmission Date: 20260117
  Serious: Yes (Other)
  Sender: NOVARTIS
  Company Number: TR-002147023-NVSC2024TR033835

PATIENT
  Age: 53 Year
  Sex: Male
  Weight: 90 kg

DRUGS (2)
  1. SCEMBLIX [Suspect]
     Active Substance: ASCIMINIB HYDROCHLORIDE
     Indication: Chronic myeloid leukaemia
     Dosage: 40 MG, BID (STRENGTH: 40 MG)
     Route: 048
     Dates: start: 20231122, end: 20240217
  2. SCEMBLIX [Suspect]
     Active Substance: ASCIMINIB HYDROCHLORIDE
     Dosage: 40 MG, BID
     Route: 048

REACTIONS (10)
  - Leukoplakia oral [Unknown]
  - Mouth ulceration [Unknown]
  - Graft versus host disease oral [Unknown]
  - Chronic myeloid leukaemia recurrent [Unknown]
  - Hepatitis B reactivation [Recovered/Resolved]
  - Glomerular filtration rate decreased [Unknown]
  - Blood bilirubin increased [Unknown]
  - Blood bilirubin unconjugated increased [Unknown]
  - Platelet count decreased [Unknown]
  - Oral disorder [Unknown]

NARRATIVE: CASE EVENT DATE: 20251002
